FAERS Safety Report 13269686 (Version 1)
Quarter: 2017Q1

REPORT INFORMATION
  Report Type: Report from Study
  Country: US (occurrence: US)
  Receive Date: 20170224
  Receipt Date: 20170224
  Transmission Date: 20170428
  Serious: Yes (Hospitalization)
  Sender: FDA-Public Use
  Company Number: US-ASTRAZENECA-2017SE18872

PATIENT
  Age: 991 Month
  Sex: Female
  Weight: 83 kg

DRUGS (5)
  1. LISINOPRIL. [Concomitant]
     Active Substance: LISINOPRIL
  2. METOPROLOL. [Concomitant]
     Active Substance: METOPROLOL
     Dates: start: 20161212
  3. CIPROFLOXACIN. [Concomitant]
     Active Substance: CIPROFLOXACIN
     Dates: start: 20161221
  4. AZD2281 [Suspect]
     Active Substance: OLAPARIB
     Indication: OVARIAN EPITHELIAL CANCER
     Route: 048
     Dates: start: 20161208, end: 20161224
  5. AZD2171 [Suspect]
     Active Substance: CEDIRANIB
     Indication: OVARIAN EPITHELIAL CANCER
     Route: 048
     Dates: start: 20161208, end: 20161224

REACTIONS (5)
  - Confusional state [Not Recovered/Not Resolved]
  - Delirium [Not Recovered/Not Resolved]
  - Hypertension [Not Recovered/Not Resolved]
  - Encephalopathy [Not Recovered/Not Resolved]
  - Muscular weakness [Not Recovered/Not Resolved]

NARRATIVE: CASE EVENT DATE: 20161225
